FAERS Safety Report 9498255 (Version 1)
Quarter: 2013Q3

REPORT INFORMATION
  Report Type: Spontaneous
  Country: NL (occurrence: NL)
  Receive Date: 20130904
  Receipt Date: 20130904
  Transmission Date: 20140515
  Serious: Yes (Other)
  Sender: FDA-Public Use
  Company Number: NL-BAYER-2013-106720

PATIENT
  Age: 57 Year
  Sex: Female
  Weight: 81 kg

DRUGS (3)
  1. NAPROXEN SODIUM ({=220 MG) [Suspect]
     Indication: BACK PAIN
     Dosage: 1 DF, BID
     Dates: start: 2013, end: 20130603
  2. PANTOPRAZOLE [Concomitant]
     Dosage: 40 MG, QD
  3. PARACETAMOL [Concomitant]
     Dosage: 500 MG, BID

REACTIONS (1)
  - Hepatitis cholestatic [Recovered/Resolved]
